FAERS Safety Report 16673542 (Version 1)
Quarter: 2019Q3

REPORT INFORMATION
  Report Type: Spontaneous
  Country: US (occurrence: US)
  Receive Date: 20190806
  Receipt Date: 20190806
  Transmission Date: 20191004
  Serious: No
  Sender: FDA-Public Use
  Company Number: US-MYLANLABS-2019M1065542

PATIENT
  Sex: Male

DRUGS (13)
  1. VITAMIN D                          /00107901/ [Concomitant]
     Active Substance: ERGOCALCIFEROL
     Dosage: UNK
  2. POTASSIUM CITRATE. [Concomitant]
     Active Substance: POTASSIUM CITRATE
  3. PREDNISONE. [Concomitant]
     Active Substance: PREDNISONE
  4. MYCOPHENOLATE MOFETIL TABLETS, USP [Suspect]
     Active Substance: MYCOPHENOLATE MOFETIL
     Indication: PEMPHIGOID
     Dosage: UNK
     Route: 065
     Dates: start: 20190606
  5. LYRICA [Concomitant]
     Active Substance: PREGABALIN
  6. ULORIC [Concomitant]
     Active Substance: FEBUXOSTAT
  7. CALCITRIOL. [Concomitant]
     Active Substance: CALCITRIOL
  8. ISOSORBIDE. [Concomitant]
     Active Substance: ISOSORBIDE
  9. MICARDIS [Concomitant]
     Active Substance: TELMISARTAN
  10. EZETIMIBE. [Concomitant]
     Active Substance: EZETIMIBE
  11. CLOPIDOGREL [Concomitant]
     Active Substance: CLOPIDOGREL BISULFATE
  12. METOPROLOL. [Concomitant]
     Active Substance: METOPROLOL
  13. ASPIRIN                            /00002701/ [Concomitant]
     Active Substance: ASPIRIN

REACTIONS (3)
  - Blister [Recovering/Resolving]
  - Pruritus [Recovering/Resolving]
  - Drug ineffective for unapproved indication [Recovering/Resolving]

NARRATIVE: CASE EVENT DATE: 20190606
